FAERS Safety Report 8405316-X (Version None)
Quarter: 2012Q2

REPORT INFORMATION
  Report Type: 
  Country: None (occurrence: None)
  Receive Date: 20120604
  Receipt Date: 20120530
  Transmission Date: 20120825
  Serious: Yes (Death, Other)
  Sender: FDA-Public Use
  Company Number: US-AMGEN-USASP2012029222

PATIENT
  Sex: Male
  Weight: 75.2 kg

DRUGS (8)
  1. ENZYME INHIBITORS [Concomitant]
  2. MORPHINE SULFATE [Concomitant]
     Indication: PAIN
     Dosage: 15 MG, PRN
     Route: 048
     Dates: start: 20120116
  3. HYDROCHLOROTHIAZIDE [Concomitant]
     Indication: HYPERTENSION
     Dosage: UNK
     Route: 048
     Dates: start: 20120327
  4. NORCO [Concomitant]
     Indication: PAIN
     Dosage: UNK UNK, PRN
     Route: 048
     Dates: start: 20120114
  5. MS CONTIN [Concomitant]
     Indication: PAIN
     Dosage: 15 MG, BID
     Route: 048
     Dates: start: 20120320
  6. NEXAVAR [Concomitant]
     Indication: RENAL CELL CARCINOMA
     Dosage: 400 MG, BID
     Route: 048
     Dates: start: 20120220, end: 20120421
  7. XGEVA [Suspect]
     Indication: PROSTATE CANCER
     Dosage: 120 MG, Q4WK
     Route: 058
     Dates: start: 20120417
  8. CALCIUM [Concomitant]

REACTIONS (3)
  - HYPOCALCAEMIA [None]
  - CARDIAC DISORDER [None]
  - DEATH [None]
